FAERS Safety Report 12920528 (Version 1)
Quarter: 2016Q4

REPORT INFORMATION
  Report Type: Report from Study
  Country: IT (occurrence: IT)
  Receive Date: 20161108
  Receipt Date: 20161108
  Transmission Date: 20170207
  Serious: Yes (Hospitalization)
  Sender: FDA-Public Use
  Company Number: PHHY2016IT152649

PATIENT
  Age: 64 Year
  Sex: Female
  Weight: 45 kg

DRUGS (4)
  1. METOCLOPRAMIDE. [Concomitant]
     Active Substance: METOCLOPRAMIDE
     Indication: PRODUCT USED FOR UNKNOWN INDICATION
     Dosage: 10 MG, QD (EACH DAY)
     Route: 065
  2. DEXAMETASON [Concomitant]
     Active Substance: DEXAMETHASONE
     Indication: PRODUCT USED FOR UNKNOWN INDICATION
     Dosage: 4 MG, QD (EACH DAY)
     Route: 065
  3. LDK378 [Suspect]
     Active Substance: CERITINIB
     Indication: PRODUCT USED FOR UNKNOWN INDICATION
     Dosage: 750 MG, QD
     Route: 048
     Dates: start: 20160912, end: 20161027
  4. LANSOPRAZOLE. [Concomitant]
     Active Substance: LANSOPRAZOLE
     Indication: PRODUCT USED FOR UNKNOWN INDICATION
     Dosage: 30 MG, QD (EACH DAY)
     Route: 065

REACTIONS (5)
  - Decreased appetite [Unknown]
  - Fatigue [Not Recovered/Not Resolved]
  - Hyperglycaemia [Recovering/Resolving]
  - Hyponatraemia [Unknown]
  - Electrocardiogram QT prolonged [Recovered/Resolved]

NARRATIVE: CASE EVENT DATE: 20161028
